FAERS Safety Report 10223588 (Version 1)
Quarter: 2014Q2

REPORT INFORMATION
  Report Type: Report from Study
  Country: US (occurrence: US)
  Receive Date: 20140609
  Receipt Date: 20140609
  Transmission Date: 20141212
  Serious: Yes (Death)
  Sender: FDA-Public Use
  Company Number: US-BRISTOL-MYERS SQUIBB COMPANY-20888616

PATIENT
  Age: 82 Year
  Sex: Female

DRUGS (10)
  1. COUMADIN [Suspect]
  2. TARCEVA [Suspect]
     Indication: LUNG NEOPLASM MALIGNANT
     Dosage: TABLET?17OCT2011 TO UNK DATE(25MG/ONCE DAILY)
     Route: 048
     Dates: start: 20111017
  3. TOPROL [Concomitant]
  4. CARDIAZEM [Concomitant]
  5. HCTZ [Concomitant]
  6. ADVAIR [Concomitant]
  7. MVI [Concomitant]
  8. DIGOXIN [Concomitant]
  9. CALCIUM CARBONATE [Concomitant]
  10. VITAMIN D [Concomitant]

REACTIONS (9)
  - Fall [Fatal]
  - Subdural haematoma [Fatal]
  - Head injury [Unknown]
  - Urinary tract infection [Unknown]
  - Eye irritation [Unknown]
  - Rash [Unknown]
  - Diarrhoea [Unknown]
  - Alopecia [Unknown]
  - Dysgeusia [Unknown]
